FAERS Safety Report 5202917-7 (Version None)
Quarter: 2006Q4

REPORT INFORMATION
  Report Type: 
  Country: None (occurrence: None)
  Receive Date: 20061016
  Receipt Date: 20060829
  Transmission Date: 20070319
  Serious: No
  Sender: FDA-Public Use
  Company Number: 2006SP003150

PATIENT
  Age: 61 Year
  Sex: Female

DRUGS (7)
  1. LUNESTA [Suspect]
     Indication: INSOMNIA
     Dosage: 2 MG; PRN; ORAL
     Route: 048
     Dates: start: 20060801
  2. AMBIEN [Concomitant]
  3. VERAPAMIL [Concomitant]
  4. WARFARIN SODIUM [Concomitant]
  5. DIGITALIS TAB [Concomitant]
  6. GLIPIZIDE [Concomitant]
  7. LANTUS [Concomitant]

REACTIONS (3)
  - DRUG INEFFECTIVE [None]
  - MIDDLE INSOMNIA [None]
  - NIGHTMARE [None]
